FAERS Safety Report 9462130 (Version 3)
Quarter: 2013Q4

REPORT INFORMATION
  Report Type: Report from Study
  Country: ES (occurrence: ES)
  Receive Date: 20130816
  Receipt Date: 20131008
  Transmission Date: 20140711
  Serious: Yes (Hospitalization)
  Sender: FDA-Public Use
  Company Number: ES-EISAI INC-E7389-04119-CLI-ES

PATIENT
  Age: 73 Year
  Sex: Female

DRUGS (3)
  1. E7389 (BOLD) [Suspect]
     Indication: BLADDER CANCER
     Route: 041
     Dates: start: 20130619
  2. GEMCITABINE [Suspect]
     Indication: BLADDER CANCER
     Route: 042
     Dates: start: 20130619
  3. CISPLATIN [Suspect]
     Indication: BLADDER CANCER
     Route: 042
     Dates: start: 20130619

REACTIONS (1)
  - Transient ischaemic attack [Recovered/Resolved]
